FAERS Safety Report 8195745-4 (Version None)
Quarter: 2012Q1

REPORT INFORMATION
  Report Type: 
  Country: None (occurrence: None)
  Receive Date: 20120308
  Receipt Date: 20120302
  Transmission Date: 20120608
  Serious: Yes (Hospitalization)
  Sender: FDA-Public Use
  Company Number: JP-PFIZER INC-2012041189

PATIENT
  Age: 51 Year
  Sex: Male

DRUGS (3)
  1. SULFASALAZINE [Suspect]
     Indication: COLITIS ULCERATIVE
     Dosage: UNK
     Route: 048
     Dates: start: 20020101
  2. CALFINA [Suspect]
     Dosage: UNK
     Route: 048
  3. CEFAZOLIN SODIUM [Concomitant]
     Dosage: UNK
     Route: 048

REACTIONS (1)
  - LIVER DISORDER [None]
